FAERS Safety Report 7864729-5 (Version None)
Quarter: 2011Q4

REPORT INFORMATION
  Report Type: 
  Country: None (occurrence: None)
  Receive Date: 20111028
  Receipt Date: 20111017
  Transmission Date: 20120403
  Serious: Yes (Other)
  Sender: FDA-Public Use
  Company Number: US-ELI_LILLY_AND_COMPANY-US201110004679

PATIENT
  Age: 56 Year
  Sex: Female

DRUGS (2)
  1. XANAX [Concomitant]
  2. ZYPREXA [Suspect]
     Indication: BIPOLAR DISORDER
     Dosage: UNK UNK, QD
     Dates: start: 19980101

REACTIONS (4)
  - FATIGUE [None]
  - ASTHENIA [None]
  - BREAST CANCER [None]
  - PYREXIA [None]
